FAERS Safety Report 6002466-2 (Version None)
Quarter: 2008Q4

REPORT INFORMATION
  Report Type: 
  Country: None (occurrence: None)
  Receive Date: 20081215
  Receipt Date: 20071128
  Transmission Date: 20090506
  Serious: No
  Sender: FDA-Public Use
  Company Number: US-AMGEN-KDL254624

PATIENT
  Sex: Female

DRUGS (1)
  1. ENBREL [Suspect]
     Indication: CROHN'S DISEASE
     Route: 058
     Dates: start: 20071121

REACTIONS (5)
  - ARTHRALGIA [None]
  - BACK PAIN [None]
  - DIARRHOEA [None]
  - HAEMORRHOIDAL HAEMORRHAGE [None]
  - NAUSEA [None]
